FAERS Safety Report 10728281 (Version 1)
Quarter: 2015Q1

REPORT INFORMATION
  Report Type: Report from Study
  Country: US (occurrence: US)
  Receive Date: 20150121
  Receipt Date: 20150121
  Transmission Date: 20150721
  Serious: Yes (Other)
  Sender: FDA-Public Use
  Company Number: US-AMGEN-USASL2015003629

PATIENT
  Age: 35 Year
  Sex: Female

DRUGS (1)
  1. ENBREL [Suspect]
     Active Substance: ETANERCEPT
     Indication: RHEUMATOID ARTHRITIS
     Dosage: 50 MG, QWK
     Route: 065
     Dates: start: 20121226, end: 20141210

REACTIONS (14)
  - Dental caries [Recovered/Resolved]
  - Injury [Recovered/Resolved]
  - Sinusitis [Unknown]
  - Chondropathy [Not Recovered/Not Resolved]
  - Joint swelling [Not Recovered/Not Resolved]
  - Pain [Recovered/Resolved]
  - Mouth swelling [Not Recovered/Not Resolved]
  - Arthralgia [Recovered/Resolved]
  - Contusion [Not Recovered/Not Resolved]
  - Tooth extraction [Recovered/Resolved]
  - Tooth fracture [Not Recovered/Not Resolved]
  - Fall [Recovered/Resolved]
  - Vaginal haemorrhage [Recovered/Resolved]
  - Cervical dysplasia [Recovered/Resolved]

NARRATIVE: CASE EVENT DATE: 2012
